FAERS Safety Report 15682704 (Version 4)
Quarter: 2021Q4

REPORT INFORMATION
  Report Type: Report from Study
  Country: BE (occurrence: BE)
  Receive Date: 20181203
  Receipt Date: 20211217
  Transmission Date: 20220303
  Serious: Yes (Hospitalization, Other)
  Sender: FDA-Public Use
  Company Number: BE-BRISTOL-MYERS SQUIBB COMPANY-BMS-2018-112253

PATIENT
  Age: 70 Year
  Sex: Female
  Weight: 94.5 kg

DRUGS (13)
  1. PLACEBO [Suspect]
     Active Substance: UNSPECIFIED INGREDIENT
     Indication: Malignant melanoma
     Dosage: 1 MG/KG, Q6WK
     Route: 042
     Dates: start: 20171019, end: 20180503
  2. NIVOLUMAB [Suspect]
     Active Substance: NIVOLUMAB
     Indication: Malignant melanoma
     Dosage: 480 MILLIGRAM, Q4WK
     Route: 042
     Dates: start: 20171019, end: 20180503
  3. INDAPAMIDE EG [Concomitant]
     Indication: Product used for unknown indication
     Dosage: 2.5 MG, UNK
     Route: 065
     Dates: start: 2014
  4. LISINOPRIL [Concomitant]
     Active Substance: LISINOPRIL
     Indication: Product used for unknown indication
     Dosage: 20 MG, UNK
     Route: 065
  5. METFORMIN HYDROCHLORIDE [Concomitant]
     Active Substance: METFORMIN HYDROCHLORIDE
     Indication: Product used for unknown indication
     Dosage: 2550 MG, UNK
     Route: 065
  6. JANUVIA [Concomitant]
     Active Substance: SITAGLIPTIN PHOSPHATE
     Indication: Product used for unknown indication
     Dosage: 100 MG, UNK
     Route: 065
  7. BREWERS YEAST [Concomitant]
     Active Substance: SACCHAROMYCES CEREVISIAE
     Indication: Product used for unknown indication
     Dosage: 1920 MG, UNK
     Route: 065
  8. DIFLUCORTOLONE VALERATE [Concomitant]
     Active Substance: DIFLUCORTOLONE VALERATE
     Indication: Product used for unknown indication
     Dosage: 0.3 %, UNK
     Route: 065
     Dates: start: 20180503
  9. PANTOMED [DEXPANTHENOL] [Concomitant]
     Indication: Product used for unknown indication
     Dosage: 20 MG, UNK
     Route: 065
     Dates: start: 20180517
  10. JELONET [PARAFFIN SOFT] [Concomitant]
     Indication: Product used for unknown indication
     Dosage: UNK
     Route: 065
     Dates: start: 20180517
  11. KAYEXALATE [Concomitant]
     Active Substance: SODIUM POLYSTYRENE SULFONATE
     Indication: Product used for unknown indication
     Dosage: UNK
     Route: 065
     Dates: start: 20180618
  12. MEDROL [Concomitant]
     Active Substance: METHYLPREDNISOLONE
     Indication: Product used for unknown indication
     Dosage: 24 MG, UNK
     Route: 065
     Dates: start: 20181111, end: 20181119
  13. MEDROL [Concomitant]
     Active Substance: METHYLPREDNISOLONE
     Dosage: 16 MG, UNK
     Route: 065
     Dates: start: 20181120, end: 20181126

REACTIONS (1)
  - Pemphigoid [Recovered/Resolved]

NARRATIVE: CASE EVENT DATE: 20181127
